FAERS Safety Report 8891786 (Version 1)
Quarter: 2012Q4

REPORT INFORMATION
  Report Type: Spontaneous
  Country: US (occurrence: None)
  Receive Date: 20121108
  Receipt Date: 20121108
  Transmission Date: 20130627
  Serious: Yes (Death)
  Sender: FDA-Public Use
  Company Number: None

PATIENT
  Sex: Male
  Weight: 107.05 kg

DRUGS (1)
  1. METOCLOPRAMIDE [Suspect]
     Route: 042
     Dates: start: 20120524, end: 20120525

REACTIONS (2)
  - Infection [None]
  - Diverticular perforation [None]
